FAERS Safety Report 22531777 (Version 2)
Quarter: 2023Q2

REPORT INFORMATION
  Report Type: Report from Study
  Country: US (occurrence: US)
  Receive Date: 20230607
  Receipt Date: 20230613
  Transmission Date: 20230722
  Serious: Yes (Hospitalization)
  Sender: FDA-Public Use
  Company Number: US-ABBVIE-5279438

PATIENT
  Sex: Male

DRUGS (1)
  1. VENCLEXTA [Suspect]
     Active Substance: VENETOCLAX
     Indication: Chronic lymphocytic leukaemia
     Route: 048
     Dates: start: 202303

REACTIONS (4)
  - Fall [Unknown]
  - Dizziness [Unknown]
  - Head injury [Unknown]
  - Hypophagia [Unknown]

NARRATIVE: CASE EVENT DATE: 20230101
